FAERS Safety Report 13822757 (Version 3)
Quarter: 2019Q1

REPORT INFORMATION
  Report Type: Report from Study
  Country: CO (occurrence: CO)
  Receive Date: 20170801
  Receipt Date: 20190322
  Transmission Date: 20190417
  Serious: Yes (Hospitalization)
  Sender: FDA-Public Use
  Company Number: PHHY2017CO110240

PATIENT
  Age: 11 Year
  Sex: Female
  Weight: 25 kg

DRUGS (5)
  1. HYDROXYUREA. [Concomitant]
     Active Substance: HYDROXYUREA
     Indication: HAEMOGLOBIN ABNORMAL
     Dosage: 500 MG, QD (2 YEARS AGO APPROXIMATELY)
     Route: 048
  2. FOLIC ACID. [Concomitant]
     Active Substance: FOLIC ACID
     Indication: RED BLOOD CELL COUNT ABNORMAL
     Dosage: 5 MG, QD (SINCE SHE WAS BORN)
     Route: 048
  3. JADENU [Suspect]
     Active Substance: DEFERASIROX
     Indication: THALASSAEMIA
     Dosage: 360 MG, QD (4 YEARS AGO APPROXIMATELY)
     Route: 048
  4. EXJADE [Suspect]
     Active Substance: DEFERASIROX
     Dosage: 500 MG, QD
     Route: 048
  5. EXJADE [Suspect]
     Active Substance: DEFERASIROX
     Indication: THALASSAEMIA
     Dosage: 250 MG, QD
     Route: 048
     Dates: start: 20100901

REACTIONS (9)
  - Dizziness [Recovered/Resolved]
  - Abdominal pain [Recovered/Resolved]
  - Haemoglobin decreased [Recovered/Resolved]
  - Serum ferritin increased [Recovered/Resolved]
  - Weight increased [Unknown]
  - Drug ineffective [Unknown]
  - Product use issue [Unknown]
  - Blood iron increased [Unknown]
  - Feeling abnormal [Recovered/Resolved]

NARRATIVE: CASE EVENT DATE: 20190222
